FAERS Safety Report 5978836-5 (Version None)
Quarter: 2008Q4

REPORT INFORMATION
  Report Type: 
  Country: None (occurrence: None)
  Receive Date: 20081204
  Receipt Date: 20081127
  Transmission Date: 20090506
  Serious: Yes (Other)
  Sender: FDA-Public Use
  Company Number: PHHY2008DE29835

PATIENT
  Sex: Female

DRUGS (6)
  1. ZOMETA [Suspect]
     Indication: METASTASES TO BONE
     Dosage: 4 MG EVERY 4 WEEKS
     Route: 042
     Dates: start: 20001001, end: 20020101
  2. PAMIDRONATE DISODIUM [Suspect]
     Indication: METASTASES TO BONE
     Dosage: UNK
     Route: 042
     Dates: start: 20020201, end: 20050301
  3. ARIMIDEX [Concomitant]
     Indication: BREAST CANCER METASTATIC
     Dosage: 1 DAILY
     Dates: start: 20001001, end: 20040601
  4. FASLODEX [Concomitant]
     Indication: BREAST CANCER METASTATIC
     Dosage: 1 EVERY 4 WEEKS
     Dates: start: 20040601
  5. BENDAMUSTINE [Concomitant]
     Indication: BREAST CANCER METASTATIC
     Dosage: 70 MG/M^2
     Dates: start: 20050201, end: 20050401
  6. DEXAMETHASONE [Concomitant]
     Indication: BREAST CANCER METASTATIC
     Dosage: 8 MG
     Dates: start: 20050201, end: 20050401

REACTIONS (1)
  - OSTEONECROSIS [None]
